FAERS Safety Report 5716177-1 (Version None)
Quarter: 2008Q2

REPORT INFORMATION
  Report Type: 
  Country: None (occurrence: None)
  Receive Date: 20080424
  Receipt Date: 20080421
  Transmission Date: 20081010
  Serious: Yes (Other)
  Sender: FDA-Public Use
  Company Number: PHEH2008US02290

PATIENT
  Age: 59 Year
  Sex: Male
  Weight: 71.655 kg

DRUGS (2)
  1. SERENTIL [Suspect]
     Indication: DEMENTIA
     Dosage: 50 MG, UNK
     Route: 048
     Dates: start: 19950701, end: 20040101
  2. RISPERDAL [Suspect]
     Indication: DEMENTIA
     Dosage: 1 MG, QD
     Route: 048
     Dates: start: 20040412

REACTIONS (5)
  - CHEST PAIN [None]
  - ERECTILE DYSFUNCTION [None]
  - MYOCARDIAL INFARCTION [None]
  - SPERM COUNT ABNORMAL [None]
  - THOUGHT BLOCKING [None]
